FAERS Safety Report 7320834-3 (Version None)
Quarter: 2011Q1

REPORT INFORMATION
  Report Type: 
  Country: None (occurrence: None)
  Receive Date: 20110228
  Receipt Date: 20110217
  Transmission Date: 20110831
  Serious: Yes (Hospitalization, Other)
  Sender: FDA-Public Use
  Company Number: CA-JNJFOC-20100601458

PATIENT
  Sex: Female
  Weight: 68.6 kg

DRUGS (3)
  1. REMICADE [Suspect]
     Indication: CROHN'S DISEASE
     Dosage: 24 DOSES TOTAL
     Route: 042
  2. ANTI-DEPRESSANT [Concomitant]
  3. REMICADE [Suspect]
     Route: 042

REACTIONS (9)
  - DIARRHOEA [None]
  - LETHARGY [None]
  - PAIN [None]
  - ABDOMINAL PAIN [None]
  - NAUSEA [None]
  - HAEMATEMESIS [None]
  - DEHYDRATION [None]
  - HEADACHE [None]
  - DECREASED APPETITE [None]
